FAERS Safety Report 5101802-9 (Version None)
Quarter: 2006Q3

REPORT INFORMATION
  Report Type: 
  Country: None (occurrence: None)
  Receive Date: 20060911
  Receipt Date: 20060828
  Transmission Date: 20061208
  Serious: Yes (Hospitalization)
  Sender: FDA-Public Use
  Company Number: US-PURDUE-USA_2006_0025049

PATIENT
  Age: 14 Year
  Sex: Female
  Weight: 39 kg

DRUGS (4)
  1. OXYCONTIN [Suspect]
     Indication: PAIN
     Dosage: 20 MG, SEE TEXT
     Route: 048
     Dates: start: 20060101
  2. OXYCONTIN [Suspect]
     Dosage: 20 MG, SEE TEXT
     Route: 048
  3. OXYCONTIN [Suspect]
     Dosage: 30 MG, SEE TEXT
     Route: 048
  4. OXYCODONE HCL [Suspect]
     Indication: BREAKTHROUGH PAIN
     Dosage: 10 MG, SEE TEXT
     Route: 048

REACTIONS (8)
  - ABNORMAL DREAMS [None]
  - CHILLS [None]
  - DRUG INTOLERANCE [None]
  - FEELING ABNORMAL [None]
  - HYPERHIDROSIS [None]
  - OFF LABEL USE [None]
  - PYREXIA [None]
  - TREMOR [None]
